FAERS Safety Report 5740386-9 (Version None)
Quarter: 2008Q2

REPORT INFORMATION
  Report Type: 
  Country: None (occurrence: None)
  Receive Date: 20080516
  Receipt Date: 20080514
  Transmission Date: 20081010
  Serious: Yes (Hospitalization, Other)
  Sender: FDA-Public Use
  Company Number: US-ASTRAZENECA-2008UW08043

PATIENT
  Age: 23831 Day
  Sex: Female

DRUGS (7)
  1. ARIMIDEX [Suspect]
     Indication: BREAST CANCER FEMALE
     Route: 048
  2. ARIMIDEX [Suspect]
     Indication: PROPHYLAXIS
     Route: 048
  3. DIOVAN [Concomitant]
     Route: 048
  4. TRICOR [Concomitant]
     Route: 048
  5. BONIVA [Concomitant]
     Route: 048
  6. CALTRATE +D [Concomitant]
     Indication: OSTEOPENIA
     Route: 048
  7. NIFEDIPINE [Concomitant]
     Route: 048

REACTIONS (2)
  - MASTECTOMY [None]
  - TRANSIENT ISCHAEMIC ATTACK [None]
